FAERS Safety Report 7733150-2 (Version None)
Quarter: 2011Q3

REPORT INFORMATION
  Report Type: 
  Country: None (occurrence: None)
  Receive Date: 20110907
  Receipt Date: 20110901
  Transmission Date: 20111222
  Serious: Yes (Hospitalization, Other)
  Sender: FDA-Public Use
  Company Number: AR-AMGEN-ARGSP2011045105

PATIENT
  Age: 30 Year
  Sex: Female
  Weight: 37 kg

DRUGS (1)
  1. ENBREL [Suspect]
     Indication: RHEUMATOID ARTHRITIS
     Dosage: 50 MG, WEEKLY
     Dates: start: 20010405, end: 20110801

REACTIONS (3)
  - SPEECH DISORDER [None]
  - CONVULSION [None]
  - JOINT STIFFNESS [None]
